FAERS Safety Report 9220493 (Version 1)
Quarter: 2013Q2

REPORT INFORMATION
  Report Type: Spontaneous
  Country: US (occurrence: US)
  Receive Date: 20130409
  Receipt Date: 20130409
  Transmission Date: 20140414
  Serious: No
  Sender: FDA-Public Use
  Company Number: US-BAYER-2013-044269

PATIENT
  Age: 63 Year
  Sex: Female

DRUGS (5)
  1. BETASERON [Suspect]
     Dosage: 0.25 MG (1ML), QOD
     Route: 058
  2. LISINOPRIL [Concomitant]
     Indication: HYPERTENSION
     Dosage: 40 MG, UNK
     Route: 048
  3. LYRICA [Concomitant]
     Dosage: 25 MG, UNK
     Route: 048
  4. LEVOTHYROXIN [Concomitant]
     Dosage: 100 ?G, UNK
     Route: 048
  5. ALPRAZOLAM [Concomitant]
     Dosage: 0.5 MG, UNK
     Route: 048

REACTIONS (1)
  - Dyspepsia [Unknown]
